FAERS Safety Report 5948445-2 (Version None)
Quarter: 2008Q4

REPORT INFORMATION
  Report Type: 
  Country: None (occurrence: None)
  Receive Date: 20081111
  Receipt Date: 20081106
  Transmission Date: 20090506
  Serious: Yes (Hospitalization)
  Sender: FDA-Public Use
  Company Number: US-ASTRAZENECA-2008UW24950

PATIENT
  Age: 68 Year
  Sex: Female

DRUGS (5)
  1. ARIMIDEX [Suspect]
     Route: 048
     Dates: start: 20030901
  2. LIPITOR [Concomitant]
  3. PROTONIX [Concomitant]
  4. PLAVIX [Concomitant]
  5. LISINOPRIL [Concomitant]

REACTIONS (4)
  - ARTHRALGIA [None]
  - BENIGN BREAST NEOPLASM [None]
  - BONE PAIN [None]
  - MYOCARDIAL INFARCTION [None]
